FAERS Safety Report 15472903 (Version 1)
Quarter: 2018Q4

REPORT INFORMATION
  Report Type: Spontaneous
  Country: US (occurrence: US)
  Receive Date: 20181008
  Receipt Date: 20181008
  Transmission Date: 20190205
  Serious: No
  Sender: FDA-Public Use
  Company Number: US-PFIZER INC-2017514485

PATIENT
  Age: 62 Year
  Sex: Female

DRUGS (3)
  1. GENOTROPIN [Suspect]
     Active Substance: SOMATROPIN
     Dosage: 0.5 MG, DAILY
     Dates: start: 2003
  2. GENOTROPIN [Suspect]
     Active Substance: SOMATROPIN
     Indication: GROWTH HORMONE DEFICIENCY
     Dosage: 0.5MG INJECTED UNDER THE SKIN ONCE DAILY
  3. GENOTROPIN [Suspect]
     Active Substance: SOMATROPIN
     Dosage: REDUCED HER DOSE/WAS TAKING 0.2MG OR 0.3MG
     Dates: start: 201611, end: 20170926

REACTIONS (13)
  - Blood triglycerides increased [Unknown]
  - Non-high-density lipoprotein cholesterol increased [Unknown]
  - Low density lipoprotein increased [Unknown]
  - Blood sodium increased [Unknown]
  - Haematocrit decreased [Unknown]
  - Red cell distribution width increased [Unknown]
  - Blood glucose increased [Unknown]
  - Human epidermal growth factor receptor decreased [Unknown]
  - Blood chloride increased [Unknown]
  - Intentional product use issue [Unknown]
  - High density lipoprotein decreased [Unknown]
  - Haemoglobin decreased [Unknown]
  - Blood creatinine increased [Unknown]

NARRATIVE: CASE EVENT DATE: 201611
